FAERS Safety Report 4681457-8 (Version None)
Quarter: 2005Q2

REPORT INFORMATION
  Report Type: 
  Country: None (occurrence: None)
  Receive Date: 20050601
  Receipt Date: 20050513
  Transmission Date: 20051028
  Serious: Yes (Death)
  Sender: FDA-Public Use
  Company Number: USA050597997

PATIENT
  Age: 13 Year
  Sex: Female
  Weight: 29 kg

DRUGS (3)
  1. HUMATROPE [Suspect]
     Indication: BODY HEIGHT BELOW NORMAL
     Dosage: 1.6 MG DAY
     Dates: start: 20040914
  2. PREDNISONE [Concomitant]
  3. ACTIGALL (UROSODEOXYCHOLIC ACID) [Concomitant]

REACTIONS (1)
  - DEATH [None]
